FAERS Safety Report 11989432 (Version 4)
Quarter: 2019Q1

REPORT INFORMATION
  Report Type: Spontaneous
  Country: JP (occurrence: JP)
  Receive Date: 20160202
  Receipt Date: 20190115
  Transmission Date: 20190417
  Serious: Yes (Hospitalization, Other)
  Sender: FDA-Public Use
  Company Number: JP-JNJFOC-20160116447

PATIENT
  Age: 67 Year
  Sex: Female
  Weight: 47 kg

DRUGS (5)
  1. TYLENOL A [Suspect]
     Active Substance: ACETAMINOPHEN
     Indication: PYREXIA
     Route: 048
     Dates: start: 20151227, end: 20151227
  2. TYLENOL A [Suspect]
     Active Substance: ACETAMINOPHEN
     Indication: OROPHARYNGEAL PAIN
     Route: 048
     Dates: start: 20151227, end: 20151227
  3. MEIACT [Suspect]
     Active Substance: CEFDITOREN PIVOXIL
     Indication: NASOPHARYNGITIS
     Route: 048
     Dates: start: 20151228, end: 20151228
  4. LOXONIN [Suspect]
     Active Substance: LOXOPROFEN SODIUM
     Indication: NASOPHARYNGITIS
     Route: 048
     Dates: start: 20151228, end: 20151228
  5. BIOFERMIN [Suspect]
     Active Substance: BACILLUS SUBTILIS\LACTOBACILLUS ACIDOPHILUS\STREPTOCOCCUS FAECAIS
     Indication: NASOPHARYNGITIS
     Route: 048
     Dates: start: 20151228, end: 20151228

REACTIONS (1)
  - Stevens-Johnson syndrome [Recovered/Resolved]

NARRATIVE: CASE EVENT DATE: 20151229
